FAERS Safety Report 13024003 (Version 1)
Quarter: 2016Q4

REPORT INFORMATION
  Report Type: Spontaneous
  Country: US (occurrence: US)
  Receive Date: 20161213
  Receipt Date: 20161213
  Transmission Date: 20170207
  Serious: Yes (Other)
  Sender: FDA-Public Use
  Company Number: US-PFIZER INC-2016571661

PATIENT
  Age: 85 Year
  Sex: Female

DRUGS (1)
  1. MORPHINE SULFATE. [Suspect]
     Active Substance: MORPHINE SULFATE

REACTIONS (3)
  - Drug hypersensitivity [Unknown]
  - Loss of consciousness [Unknown]
  - Shock [Unknown]
